FAERS Safety Report 10597814 (Version 1)
Quarter: 2014Q4

REPORT INFORMATION
  Report Type: Spontaneous
  Country: US (occurrence: None)
  Receive Date: 20141120
  Receipt Date: 20141120
  Transmission Date: 20150529
  Serious: Yes (Hospitalization)
  Sender: FDA-Public Use
  Company Number: None

PATIENT
  Age: 62 Year
  Sex: Female
  Weight: 105 kg

DRUGS (1)
  1. XGEVA [Suspect]
     Active Substance: DENOSUMAB
     Indication: BREAST CANCER METASTATIC
     Dosage: 1 INJECTION, EVERY 4 WEEKS, GIVEN INTO/UNDER THE SKIN
     Dates: start: 20110525, end: 20140926

REACTIONS (5)
  - Stress fracture [None]
  - Gout [None]
  - Fracture nonunion [None]
  - Foot fracture [None]
  - Pain in extremity [None]

NARRATIVE: CASE EVENT DATE: 20140204
